APPROVED DRUG PRODUCT: NIFEDIPINE
Active Ingredient: NIFEDIPINE
Strength: 10MG
Dosage Form/Route: CAPSULE;ORAL
Application: A072579 | Product #001 | TE Code: AB
Applicant: ACTAVIS ELIZABETH LLC
Approved: Jan 8, 1991 | RLD: No | RS: No | Type: RX